FAERS Safety Report 16840712 (Version 1)
Quarter: 2019Q3

REPORT INFORMATION
  Report Type: Spontaneous
  Country: ES (occurrence: ES)
  Receive Date: 20190923
  Receipt Date: 20190923
  Transmission Date: 20191005
  Serious: Yes (Hospitalization)
  Sender: FDA-Public Use
  Company Number: ES-ELI_LILLY_AND_COMPANY-ES201909006731

PATIENT
  Age: 58 Year
  Sex: Female

DRUGS (8)
  1. INNOHEP [Suspect]
     Active Substance: TINZAPARIN SODIUM
     Indication: CEREBROVASCULAR ACCIDENT
     Dosage: 1 DOSAGE FORM, DAILY
     Route: 058
     Dates: start: 2018
  2. INNOHEP [Suspect]
     Active Substance: TINZAPARIN SODIUM
     Indication: DEEP VEIN THROMBOSIS
     Dosage: 1 UNK
     Route: 058
     Dates: start: 2018, end: 2018
  3. LORAZEPAM. [Concomitant]
     Active Substance: LORAZEPAM
     Indication: ANXIETY
     Dosage: 1 MG, BID
     Route: 048
     Dates: start: 2018
  4. CISPLATIN. [Suspect]
     Active Substance: CISPLATIN
     Indication: CHOLANGIOCARCINOMA
     Dosage: 25 MG/M2, ONE DAY EVERY 21 DAYS FOR 3 CYCLES
     Route: 042
     Dates: start: 2018, end: 2018
  5. INNOHEP [Suspect]
     Active Substance: TINZAPARIN SODIUM
     Indication: VISCERAL VENOUS THROMBOSIS
     Dosage: UNK, UNKNOWN
     Route: 065
  6. GEMCITABINE HYDROCHLORIDE. [Suspect]
     Active Substance: GEMCITABINE HYDROCHLORIDE
     Indication: CHOLANGIOCARCINOMA
     Dosage: 1000 MG/M2,  ON DAYS 1 AND 8 OF EACH CYCLE OF 21 DAYS
     Route: 065
     Dates: start: 2018
  7. INNOHEP [Suspect]
     Active Substance: TINZAPARIN SODIUM
     Indication: PULMONARY EMBOLISM
     Dosage: 1 DOSAGE FORM, DAILY
     Route: 058
     Dates: start: 2018, end: 2018
  8. PARACETAMOL [Concomitant]
     Active Substance: ACETAMINOPHEN
     Indication: PAIN
     Dosage: 1 GRAM WHEN NEEDED
     Route: 048
     Dates: start: 2018

REACTIONS (4)
  - Cerebrovascular accident [Recovered/Resolved]
  - Visceral venous thrombosis [Recovering/Resolving]
  - Pulmonary embolism [Recovered/Resolved]
  - Drug ineffective [Unknown]
